FAERS Safety Report 16725049 (Version 1)
Quarter: 2019Q4

REPORT INFORMATION
  Report Type: Spontaneous
  Country: US (occurrence: US)
  Receive Date: 20190820
  Receipt Date: 20190820
  Transmission Date: 20200122
  Serious: No
  Sender: FDA-Public Use
  Company Number: None

PATIENT
  Age: 60 Year
  Sex: Female
  Weight: 67.5 kg

DRUGS (3)
  1. VITAMIN D3 [Concomitant]
     Active Substance: CHOLECALCIFEROL
  2. MULTIVITAMIN [Concomitant]
     Active Substance: VITAMINS
  3. CLINDAMYCIN 300MG CAPSULES, NDC: 63304-0693-01 [Suspect]
     Active Substance: CLINDAMYCIN
     Indication: TOOTH ABSCESS
     Dosage: ?          QUANTITY:21 CAPSULE(S);?
     Route: 048
     Dates: start: 20190801, end: 20190805

REACTIONS (4)
  - Depression [None]
  - Diarrhoea [None]
  - Fatigue [None]
  - Abdominal pain upper [None]

NARRATIVE: CASE EVENT DATE: 20190803
